FAERS Safety Report 6732047-4 (Version None)
Quarter: 2010Q2

REPORT INFORMATION
  Report Type: 
  Country: None (occurrence: None)
  Receive Date: 20100519
  Receipt Date: 20100510
  Transmission Date: 20101027
  Serious: Yes (Hospitalization)
  Sender: FDA-Public Use
  Company Number: CA-ASTRAZENECA-2010SE15705

PATIENT
  Age: 67 Year
  Sex: Male
  Weight: 80 kg

DRUGS (5)
  1. SEROQUEL [Suspect]
     Indication: DEMENTIA ALZHEIMER'S TYPE
     Route: 048
  2. TRAZODONE HCL [Interacting]
     Indication: INSOMNIA
     Route: 048
     Dates: start: 20080522, end: 20080701
  3. EFFEXOR [Concomitant]
     Route: 065
  4. REMINYL [Concomitant]
  5. GRAVOL TAB [Concomitant]
     Dosage: 100 MG EVERY 4 TO 6 HOURS, IF NECESSARY

REACTIONS (2)
  - ALCOHOLISM [None]
  - DRUG INTERACTION [None]
